FAERS Safety Report 11464235 (Version 1)
Quarter: 2015Q3

REPORT INFORMATION
  Report Type: Spontaneous
  Country: US (occurrence: US)
  Receive Date: 20150831
  Receipt Date: 20150831
  Transmission Date: 20151125
  Serious: No
  Sender: FDA-Public Use
  Company Number: US-ELI_LILLY_AND_COMPANY-US201107005842

PATIENT
  Sex: Female

DRUGS (1)
  1. CYMBALTA [Suspect]
     Active Substance: DULOXETINE HYDROCHLORIDE
     Indication: NEURALGIA
     Dosage: 30 MG, QD

REACTIONS (4)
  - Abdominal pain [Recovered/Resolved]
  - Off label use [Recovered/Resolved]
  - Nerve injury [Not Recovered/Not Resolved]
  - Neuralgia [Not Recovered/Not Resolved]
